FAERS Safety Report 22996603 (Version 10)
Quarter: 2024Q2

REPORT INFORMATION
  Report Type: Report from Study
  Country: US (occurrence: US)
  Receive Date: 20230928
  Receipt Date: 20240621
  Transmission Date: 20240716
  Serious: Yes (Hospitalization, Other)
  Sender: FDA-Public Use
  Company Number: US-ACADIA PHARMACEUTICALS INC.-ACA-2023-TRF-004087

PATIENT
  Age: 17 Year
  Sex: Female
  Weight: 72 kg

DRUGS (27)
  1. DAYBUE [Suspect]
     Active Substance: TROFINETIDE
     Indication: Rett syndrome
     Dosage: 50 MILLILITER, BID VIA G-TUBE
     Dates: start: 20230629
  2. DAYBUE [Suspect]
     Active Substance: TROFINETIDE
     Dosage: 35 MILLILITER, BID VIA G-TUBE
     Dates: end: 202309
  3. DAYBUE [Suspect]
     Active Substance: TROFINETIDE
     Dosage: 50 MILLILITER, BID VIA G-TUBE
  4. DAYBUE [Suspect]
     Active Substance: TROFINETIDE
     Dosage: 20 MILLILITER VIA G-TUBE
  5. DAYBUE [Suspect]
     Active Substance: TROFINETIDE
     Dosage: 30 MILLILITER, BID VIA G-TUBE
     Dates: start: 20240202
  6. CETIRIZINE [Concomitant]
     Active Substance: CETIRIZINE HYDROCHLORIDE
     Dosage: 10 MILLIGRAM, QD AS NEEDED
     Route: 048
     Dates: start: 20210102
  7. CLOBAZAM [Concomitant]
     Active Substance: CLOBAZAM
     Dosage: 20 MG, 0.5 TAB BID, COMBINE WITH 10 MG TAB FOR 15 MG QAM +10 MGQMIDDDAY, 15 MG QHS
     Dates: start: 20230929
  8. CLOBAZAM [Concomitant]
     Active Substance: CLOBAZAM
     Dosage: 10 MILLIGRAM, TID TAKE ONE AND HALF TABLETS EVERY MORNING, TAKE ONE TABLET MIDDAY, TAKE ONE AND HALF
     Route: 048
     Dates: start: 20240307
  9. FELBAMATE [Concomitant]
     Active Substance: FELBAMATE
     Dosage: 400 MILLIGRAM, TID
     Route: 048
     Dates: start: 20240308
  10. POLYETHYLENE GLYCOL 3350 [Concomitant]
     Active Substance: POLYETHYLENE GLYCOL 3350
     Dosage: 1/2 CAP DAILY AS NEEDED
     Route: 048
     Dates: start: 20200121
  11. SODIUM CHLORIDE [Concomitant]
     Active Substance: SODIUM CHLORIDE
     Dosage: 3 PERCENT FOR NEBULIZATION PRN
     Dates: start: 20180407
  12. VALTOCO [Concomitant]
     Active Substance: DIAZEPAM
     Dosage: 0 MILLIGRAM IN NARE PRN SZ }5 MIN
     Route: 045
     Dates: start: 20230808
  13. DIETARY SUPPLEMENT [Concomitant]
     Active Substance: DIETARY SUPPLEMENT
     Dosage: 250 MILLIGRAM, QD
     Route: 048
     Dates: start: 20210617
  14. VITAMIN D NOS [Concomitant]
     Active Substance: CHOLECALCIFEROL\ERGOCALCIFEROL
     Dosage: 800 INTERNATIONAL UNIT, 0.5 TABS, TID
     Route: 048
  15. CARNITOR [Concomitant]
     Active Substance: LEVOCARNITINE
     Dosage: 100 MG/ML, TAKE 4 ML QD
     Route: 048
     Dates: start: 20210603
  16. ACCUNEB [Concomitant]
     Active Substance: ALBUTEROL SULFATE
     Dosage: 1.25 MG/3 ML, PRN
  17. PHOSLO [Concomitant]
     Active Substance: CALCIUM ACETATE
     Dosage: 667 MILLIGRAM, TID, WITH MEALS
     Route: 048
  18. ZYRTEC [Concomitant]
     Active Substance: CETIRIZINE HYDROCHLORIDE
     Dosage: 10 MILLIGRAM, NIGHTLY
     Route: 048
  19. PEPCID [Concomitant]
     Active Substance: FAMOTIDINE
     Dosage: 20 MILLIGRAM, QD
     Route: 048
     Dates: start: 20200430
  20. POTASSIUM PHOSPHATE MONOBASIC;SODIUM PHOSPHATE DIBASIC [Concomitant]
     Route: 048
  21. JUNEL FE 1/20 [Concomitant]
     Active Substance: ETHINYL ESTRADIOL\NORETHINDRONE ACETATE
     Dosage: 1-20MG/MCG
     Route: 048
  22. ONFI [Concomitant]
     Active Substance: CLOBAZAM
     Dosage: 10 MILLIGRAM, TID
  23. GLYCOLAX [Concomitant]
     Active Substance: POLYETHYLENE GLYCOL 3350
     Dosage: 17 GRAM, QD
     Route: 048
  24. ACETAMINOPHEN [Concomitant]
     Active Substance: ACETAMINOPHEN
     Dosage: PRN
  25. IBUPROFEN [Concomitant]
     Active Substance: IBUPROFEN
     Dosage: PRN
  26. LIDOCAINE [Concomitant]
     Active Substance: LIDOCAINE
     Dosage: PRN
  27. ONDANSETRON [Concomitant]
     Active Substance: ONDANSETRON
     Dosage: PRN

REACTIONS (18)
  - Aspiration [Recovered/Resolved]
  - Constipation [Recovered/Resolved]
  - Blood potassium decreased [Recovered/Resolved]
  - Pneumonia aspiration [Not Recovered/Not Resolved]
  - Pneumonia aspiration [Not Recovered/Not Resolved]
  - Weight decreased [Not Recovered/Not Resolved]
  - Constipation [Not Recovered/Not Resolved]
  - Pneumonia [Recovered/Resolved]
  - Pneumonia [Recovered/Resolved]
  - Rhinovirus infection [Recovering/Resolving]
  - Pneumonia [Recovering/Resolving]
  - Vomiting [Unknown]
  - Diarrhoea [Not Recovered/Not Resolved]
  - Seizure [Unknown]
  - Weight decreased [Not Recovered/Not Resolved]
  - Dehydration [Unknown]
  - Underdose [Not Recovered/Not Resolved]
  - Vomiting [Not Recovered/Not Resolved]

NARRATIVE: CASE EVENT DATE: 20230901
